FAERS Safety Report 5847070-1 (Version None)
Quarter: 2008Q3

REPORT INFORMATION
  Report Type: 
  Country: None (occurrence: None)
  Receive Date: 20080815
  Receipt Date: 20080804
  Transmission Date: 20090109
  Serious: Yes (Other)
  Sender: FDA-Public Use
  Company Number: BR-PFIZER INC-2008066448

PATIENT
  Sex: Female
  Weight: 60 kg

DRUGS (3)
  1. CHANTIX [Suspect]
     Indication: TOBACCO USER
     Route: 048
  2. CITALOPRAM HYDROBROMIDE [Concomitant]
     Route: 048
  3. OMEPRAZOLE [Concomitant]
     Route: 048

REACTIONS (1)
  - DEPRESSION [None]
